FAERS Safety Report 7260113-6 (Version None)
Quarter: 2011Q1

REPORT INFORMATION
  Report Type: 
  Country: None (occurrence: None)
  Receive Date: 20110130
  Receipt Date: 20100920
  Transmission Date: 20110831
  Serious: No
  Sender: FDA-Public Use
  Company Number: US-ABBOTT-10P-163-0671698-00

PATIENT
  Sex: Male
  Weight: 84.898 kg

DRUGS (2)
  1. HUMIRA [Suspect]
     Indication: RHEUMATOID ARTHRITIS
     Dates: start: 20010101
  2. DECLINED LONG LIST OF MEDICATION [Concomitant]
     Indication: PRODUCT USED FOR UNKNOWN INDICATION

REACTIONS (4)
  - PROSTATITIS [None]
  - KIDNEY INFECTION [None]
  - HERPES ZOSTER [None]
  - SKIN DISCOLOURATION [None]
